FAERS Safety Report 4677115-6 (Version None)
Quarter: 2005Q2

REPORT INFORMATION
  Report Type: 
  Country: None (occurrence: None)
  Receive Date: 20050526
  Receipt Date: 20050526
  Transmission Date: 20051028
  Serious: Yes (Life-Threatening, Hospitalization)
  Sender: FDA-Public Use
  Company Number: None

PATIENT
  Age: 63 Year
  Sex: Male
  Weight: 107.5 kg

DRUGS (1)
  1. TETRACYCLINE [Suspect]
     Indication: RASH
     Dosage: 500 MG  QID   ORAL
     Route: 048
     Dates: start: 20050305, end: 20050326

REACTIONS (1)
  - PANCREATITIS [None]
